FAERS Safety Report 23256176 (Version 1)
Quarter: 2023Q4

REPORT INFORMATION
  Report Type: Spontaneous
  Country: JP (occurrence: JP)
  Receive Date: 20231204
  Receipt Date: 20231204
  Transmission Date: 20240109
  Serious: Yes (Other)
  Sender: FDA-Public Use
  Company Number: JP-002147023-NVSJ2023JP017203

PATIENT
  Age: 66 Year
  Sex: Male

DRUGS (5)
  1. ENTRESTO [Suspect]
     Active Substance: SACUBITRIL\VALSARTAN
     Indication: Cardiac failure
     Dosage: 50 MG, BID, ONE TABLET IN THE MORNING AND ONE TABLET IN THE EVENING
     Route: 048
     Dates: start: 202305
  2. ENTRESTO [Suspect]
     Active Substance: SACUBITRIL\VALSARTAN
     Dosage: 50 MG, QD, IN THE MORNING
     Route: 048
     Dates: start: 20230629
  3. ENTRESTO [Suspect]
     Active Substance: SACUBITRIL\VALSARTAN
     Dosage: 50 MG, QD, IN THE EVENING
     Route: 048
  4. ENTRESTO [Suspect]
     Active Substance: SACUBITRIL\VALSARTAN
     Dosage: 50 MG, QD, IN THE EVENING
     Route: 048
  5. BISOPROLOL FUMARATE [Concomitant]
     Active Substance: BISOPROLOL FUMARATE
     Indication: Cardiac failure
     Dosage: UNK, IN THE MORNING
     Route: 065

REACTIONS (8)
  - Loss of consciousness [Unknown]
  - Arrhythmia [Recovered/Resolved]
  - Bradyarrhythmia [Recovered/Resolved]
  - Hypotension [Unknown]
  - Dizziness postural [Unknown]
  - Dizziness [Not Recovered/Not Resolved]
  - Ventricular extrasystoles [Recovered/Resolved]
  - Blood pressure increased [Unknown]

NARRATIVE: CASE EVENT DATE: 20230708
